FAERS Safety Report 15136376 (Version 1)
Quarter: 2018Q3

REPORT INFORMATION
  Report Type: Spontaneous
  Country: US (occurrence: US)
  Receive Date: 20180712
  Receipt Date: 20180712
  Transmission Date: 20181010
  Serious: Yes (Hospitalization)
  Sender: FDA-Public Use
  Company Number: US-TEVA-2018-US-920827

PATIENT
  Sex: Male

DRUGS (1)
  1. COPAXONE [Suspect]
     Active Substance: GLATIRAMER ACETATE
     Indication: MULTIPLE SCLEROSIS
     Route: 058
     Dates: start: 20100702, end: 20180525

REACTIONS (9)
  - Skin abrasion [Unknown]
  - Gait inability [Unknown]
  - Urinary tract infection [Not Recovered/Not Resolved]
  - Essential hypertension [Not Recovered/Not Resolved]
  - Dehydration [Unknown]
  - Urinary retention [Not Recovered/Not Resolved]
  - Hypokalaemia [Not Recovered/Not Resolved]
  - Fall [Unknown]
  - Asthenia [Unknown]
